FAERS Safety Report 10080735 (Version 1)
Quarter: 2014Q2

REPORT INFORMATION
  Report Type: Spontaneous
  Country: US (occurrence: US)
  Receive Date: 20140416
  Receipt Date: 20140416
  Transmission Date: 20141212
  Serious: Yes (Hospitalization, Other)
  Sender: FDA-Public Use
  Company Number: US-BAYER-2014-054689

PATIENT
  Age: 50 Year
  Sex: Female
  Weight: 73.47 kg

DRUGS (8)
  1. YAZ [Suspect]
  2. YASMIN [Suspect]
  3. ARICEPT [Concomitant]
     Dosage: 5 MG, BID
     Dates: start: 20071220
  4. NEURONTIN [Concomitant]
     Dosage: 300 MG, 4 [TIMES] PER DAY
     Dates: start: 20071220
  5. CLOBEX [Concomitant]
     Dosage: 10MG TWICE DAILY
     Dates: start: 20071220
  6. BENICAR [Concomitant]
     Dosage: DAILY
     Dates: start: 20071221
  7. ZYRTEC-D [Concomitant]
     Dosage: 1 DAILY
     Dates: start: 20071221
  8. PERCOCET [Concomitant]

REACTIONS (3)
  - Deep vein thrombosis [None]
  - Biliary dyskinesia [None]
  - Pelvic venous thrombosis [None]
